FAERS Safety Report 21945826 (Version 17)
Quarter: 2025Q1

REPORT INFORMATION
  Report Type: Spontaneous
  Country: US (occurrence: US)
  Receive Date: 20230202
  Receipt Date: 20250225
  Transmission Date: 20250409
  Serious: Yes (Other)
  Sender: PFIZER
  Company Number: US-PFIZER INC-PV202200126934

PATIENT
  Age: 73 Year
  Sex: Female

DRUGS (6)
  1. EUCRISA [Suspect]
     Active Substance: CRISABOROLE
     Indication: Skin irritation
     Dosage: APPLY 1 G, 2X/DAY AS NEEDED
     Route: 061
  2. EUCRISA [Suspect]
     Active Substance: CRISABOROLE
     Indication: Pruritus
     Route: 061
  3. EUCRISA [Suspect]
     Active Substance: CRISABOROLE
     Indication: Dermatitis
     Route: 061
  4. EUCRISA [Suspect]
     Active Substance: CRISABOROLE
     Indication: Vulvitis
     Route: 061
  5. EUCRISA [Suspect]
     Active Substance: CRISABOROLE
     Indication: Lichen sclerosus
  6. SEMAGLUTIDE [Concomitant]
     Active Substance: SEMAGLUTIDE
     Indication: Weight decreased

REACTIONS (11)
  - Rheumatoid arthritis [Unknown]
  - Arthropathy [Not Recovered/Not Resolved]
  - Off label use [Unknown]
  - Vulvovaginal burning sensation [Unknown]
  - Vulvovaginal pruritus [Unknown]
  - Frustration tolerance decreased [Unknown]
  - Osteoarthritis [Unknown]
  - Injection site pain [Unknown]
  - Musculoskeletal stiffness [Unknown]
  - Pain [Unknown]
  - Anxiety [Unknown]
